FAERS Safety Report 7295299-0 (Version None)
Quarter: 2011Q1

REPORT INFORMATION
  Report Type: 
  Country: None (occurrence: None)
  Receive Date: 20110203
  Receipt Date: 20110118
  Transmission Date: 20110831
  Serious: Yes (Death)
  Sender: FDA-Public Use
  Company Number: B0694941A

PATIENT
  Age: 82 Year
  Sex: Female

DRUGS (5)
  1. LITHIUM CARBONATE [Suspect]
     Dosage: ORAL
     Route: 048
  2. CLOZAPINE [Suspect]
     Dosage: ORAL
     Route: 048
  3. DOCUSATE (FORMULATION UNKNOWN) (DOCUSATE) [Suspect]
     Dosage: ORAL
     Route: 048
  4. HYDROCODONE BITARTRATE + ACETAMINOPHEN [Suspect]
     Dosage: ORAL
     Route: 048
  5. INNOPRAN XL [Suspect]
     Dosage: ORAL
     Route: 048

REACTIONS (1)
  - MEDICATION ERROR [None]
